FAERS Safety Report 19905886 (Version 1)
Quarter: 2021Q4

REPORT INFORMATION
  Report Type: Spontaneous
  Country: CA (occurrence: CA)
  Receive Date: 20211001
  Receipt Date: 20211001
  Transmission Date: 20220303
  Serious: Yes (Other)
  Sender: FDA-Public Use
  Company Number: CA-AMGEN-CANSL2021149164

PATIENT

DRUGS (1)
  1. PROLIA [Suspect]
     Active Substance: DENOSUMAB
     Indication: Product used for unknown indication
     Dosage: UNK
     Route: 065
     Dates: start: 2015

REACTIONS (12)
  - Lumbar vertebral fracture [Unknown]
  - Thoracic vertebral fracture [Unknown]
  - Diabetes mellitus [Unknown]
  - Vertebral wedging [Unknown]
  - Essential hypertension [Unknown]
  - Hepatic steatosis [Unknown]
  - Carpal tunnel syndrome [Unknown]
  - Device physical property issue [Unknown]
  - Kyphosis [Unknown]
  - Vertebroplasty [Unknown]
  - Arthroscopy [Unknown]
  - Osteoarthritis [Unknown]

NARRATIVE: CASE EVENT DATE: 20210101
